FAERS Safety Report 4843034-5 (Version None)
Quarter: 2005Q4

REPORT INFORMATION
  Report Type: 
  Country: None (occurrence: None)
  Receive Date: 20051130
  Receipt Date: 20051122
  Transmission Date: 20060501
  Serious: Yes (Death, Hospitalization)
  Sender: FDA-Public Use
  Company Number: 2005RR-01193

PATIENT
  Age: 22 Year
  Sex: Male

DRUGS (1)
  1. PARACETAMOL [Suspect]
     Dosage: 32 G,

REACTIONS (7)
  - ANURIA [None]
  - BLOOD CREATININE INCREASED [None]
  - CARDIAC ARREST [None]
  - HEPATIC FAILURE [None]
  - INTENTIONAL OVERDOSE [None]
  - OLIGURIA [None]
  - PUPIL FIXED [None]
